FAERS Safety Report 17902512 (Version 1)
Quarter: 2020Q2

REPORT INFORMATION
  Report Type: Spontaneous
  Country: US (occurrence: US)
  Receive Date: 20200616
  Receipt Date: 20200616
  Transmission Date: 20200714
  Serious: No
  Sender: FDA-Public Use
  Company Number: US-PFIZER INC-2019455195

PATIENT
  Age: 62 Year
  Sex: Female

DRUGS (2)
  1. SUTENT [Suspect]
     Active Substance: SUNITINIB MALATE
     Indication: MALIGNANT NEOPLASM OF EYE
  2. SUTENT [Suspect]
     Active Substance: SUNITINIB MALATE
     Indication: UVEAL MELANOMA
     Dosage: 25 MG, DAILY
     Route: 048

REACTIONS (3)
  - Off label use [Unknown]
  - Road traffic accident [Unknown]
  - Product use in unapproved indication [Unknown]
